FAERS Safety Report 23651956 (Version 2)
Quarter: 2024Q2

REPORT INFORMATION
  Report Type: Spontaneous
  Country: SI (occurrence: SI)
  Receive Date: 20240320
  Receipt Date: 20240403
  Transmission Date: 20240716
  Serious: Yes (Other)
  Sender: FDA-Public Use
  Company Number: SI-MYLANLABS-2024M1022417

PATIENT
  Age: 32 Year
  Sex: Male

DRUGS (4)
  1. PALIPERIDONE PALMITATE [Suspect]
     Active Substance: PALIPERIDONE PALMITATE
     Indication: Schizoaffective disorder
     Dosage: 100 MILLIGRAM, LONG ACTING INJECTABLE; IN THE GLUTEAL REGION AS A SECOND INJECTION AFTER..
     Route: 030
     Dates: start: 2021
  2. PALIPERIDONE PALMITATE [Suspect]
     Active Substance: PALIPERIDONE PALMITATE
     Dosage: AT MONTHLY OR 3-MONTHLY INTERVALS FOR A TOTAL OF 12 INJECTIONS
     Route: 030
     Dates: start: 2019
  3. PALIPERIDONE PALMITATE [Suspect]
     Active Substance: PALIPERIDONE PALMITATE
  4. RISPERIDONE [Concomitant]
     Active Substance: RISPERIDONE
     Indication: Schizoaffective disorder
     Route: 048
     Dates: start: 2021

REACTIONS (3)
  - Post-injection delirium sedation syndrome [Recovering/Resolving]
  - Treatment noncompliance [Unknown]
  - Pyrexia [Unknown]

NARRATIVE: CASE EVENT DATE: 20210101
